FAERS Safety Report 9721993 (Version 8)
Quarter: 2015Q2

REPORT INFORMATION
  Report Type: Report from Study
  Country: CA (occurrence: CA)
  Receive Date: 20131202
  Receipt Date: 20150604
  Transmission Date: 20150821
  Serious: Yes (Other)
  Sender: FDA-Public Use
  Company Number: CA-ROCHE-1137392

PATIENT
  Age: 44 Year
  Sex: Male
  Weight: 197.7 kg

DRUGS (27)
  1. VITAMIN B12 [Concomitant]
     Active Substance: CYANOCOBALAMIN
  2. SEPTRA [Concomitant]
     Active Substance: SULFAMETHOXAZOLE\TRIMETHOPRIM
     Indication: PROPHYLAXIS
  3. MEDROL [Concomitant]
     Active Substance: METHYLPREDNISOLONE
  4. RITUXAN [Suspect]
     Active Substance: RITUXIMAB
     Route: 042
     Dates: start: 20130115, end: 20130205
  5. RITUXAN [Suspect]
     Active Substance: RITUXIMAB
     Route: 042
     Dates: start: 20150105
  6. RITUXAN [Suspect]
     Active Substance: RITUXIMAB
     Route: 042
     Dates: start: 20150112
  7. METFORMIN [Concomitant]
     Active Substance: METFORMIN HYDROCHLORIDE
  8. METHOTREXATE [Concomitant]
     Active Substance: METHOTREXATE
  9. METHYLPREDNISOLONE. [Concomitant]
     Active Substance: METHYLPREDNISOLONE
     Indication: PREMEDICATION
     Route: 042
     Dates: start: 20101215
  10. FUROSEMIDE. [Concomitant]
     Active Substance: FUROSEMIDE
  11. POTASSIUM CHLORIDE. [Concomitant]
     Active Substance: POTASSIUM CHLORIDE
  12. JANUVIA [Concomitant]
     Active Substance: SITAGLIPTIN PHOSPHATE
  13. GLICLAZIDE [Concomitant]
     Active Substance: GLICLAZIDE
  14. ACETAMINOPHEN. [Concomitant]
     Active Substance: ACETAMINOPHEN
     Indication: PREMEDICATION
     Route: 048
     Dates: start: 20101215
  15. RITUXAN [Suspect]
     Active Substance: RITUXIMAB
     Route: 042
     Dates: start: 20140121
  16. RITUXAN [Suspect]
     Active Substance: RITUXIMAB
     Route: 042
     Dates: start: 20150511
  17. PANTOLOC [Concomitant]
     Active Substance: PANTOPRAZOLE SODIUM
  18. RITUXAN [Suspect]
     Active Substance: RITUXIMAB
     Indication: GRANULOMATOSIS WITH POLYANGIITIS
     Route: 042
     Dates: start: 20101215, end: 20120222
  19. RITUXAN [Suspect]
     Active Substance: RITUXIMAB
     Route: 042
     Dates: start: 20140114
  20. RITUXAN [Suspect]
     Active Substance: RITUXIMAB
     Route: 042
     Dates: start: 20150119
  21. BENADRYL [Concomitant]
     Active Substance: DIPHENHYDRAMINE HYDROCHLORIDE
     Indication: PREMEDICATION
     Route: 048
     Dates: start: 20101215
  22. LEUCOVORIN [Concomitant]
     Active Substance: LEUCOVORIN
  23. ACTONEL [Concomitant]
     Active Substance: RISEDRONATE SODIUM
  24. VITAMIN A [Concomitant]
     Active Substance: VITAMIN A
  25. TYLENOL #1 (CANADA) [Concomitant]
     Active Substance: ACETAMINOPHEN\CAFFEINE\CODEINE PHOSPHATE
     Route: 048
     Dates: start: 20101215
  26. DIPHENHYDRAMINE HYDROCHLORIDE. [Concomitant]
     Active Substance: DIPHENHYDRAMINE HYDROCHLORIDE
     Indication: PREMEDICATION
     Route: 048
     Dates: start: 20101215
  27. RITUXAN [Suspect]
     Active Substance: RITUXIMAB
     Route: 042
     Dates: start: 20140107

REACTIONS (8)
  - Infusion related reaction [Unknown]
  - Blood pressure fluctuation [Unknown]
  - Blood cholesterol abnormal [Unknown]
  - Blood pressure increased [Unknown]
  - Oral pruritus [Recovered/Resolved]
  - Weight decreased [Unknown]
  - Hypotension [Unknown]
  - Skin ulcer [Recovered/Resolved]

NARRATIVE: CASE EVENT DATE: 20130130
